FAERS Safety Report 13275954 (Version 1)
Quarter: 2017Q1

REPORT INFORMATION
  Report Type: Spontaneous
  Country: US (occurrence: US)
  Receive Date: 20170228
  Receipt Date: 20170228
  Transmission Date: 20170428
  Serious: Yes (Death)
  Sender: FDA-Public Use
  Company Number: US-ROCHE-1899060

PATIENT
  Sex: Female

DRUGS (2)
  1. FENTANYL. [Suspect]
     Active Substance: FENTANYL
     Indication: KLIPPEL-TRENAUNAY SYNDROME
     Dosage: 50 MCG PATCHES APPLY ONE PATCH EVERY 72 HOURS ;ONGOING: NO
     Route: 062
  2. KLONOPIN [Suspect]
     Active Substance: CLONAZEPAM
     Indication: PRODUCT USED FOR UNKNOWN INDICATION
     Dosage: NO
     Route: 048

REACTIONS (3)
  - Depression [Unknown]
  - Malaise [Unknown]
  - Respiratory failure [Fatal]
